FAERS Safety Report 6408131-1 (Version None)
Quarter: 2009Q4

REPORT INFORMATION
  Report Type: 
  Country: None (occurrence: None)
  Receive Date: 20091019
  Receipt Date: 20091006
  Transmission Date: 20100525
  Serious: Yes (Hospitalization)
  Sender: FDA-Public Use
  Company Number: 2009AL006464

PATIENT
  Age: 58 Year
  Sex: Male

DRUGS (6)
  1. CHLORHEXIDINE GLUCONATE [Suspect]
     Indication: PROPHYLAXIS
  2. FENTANYL TRANSDERMAL SYSTEM [Suspect]
     Indication: PROPHYLAXIS
  3. PROPOFOL [Concomitant]
  4. CISATRACURIUM [Concomitant]
  5. MIDAZOLAM HCL [Concomitant]
  6. VANCOMYCIN [Concomitant]

REACTIONS (1)
  - ANAPHYLACTIC REACTION [None]
